FAERS Safety Report 8297445-9 (Version None)
Quarter: 2012Q2

REPORT INFORMATION
  Report Type: 
  Country: None (occurrence: None)
  Receive Date: 20120419
  Receipt Date: 20120417
  Transmission Date: 20120825
  Serious: Yes (Other)
  Sender: FDA-Public Use
  Company Number: CN-PFIZER INC-2012094508

PATIENT
  Age: 16 Year
  Sex: Female
  Weight: 40 kg

DRUGS (2)
  1. ZOLOFT [Suspect]
     Dosage: 50 MG, 1X/DAY
     Route: 048
     Dates: start: 20120415
  2. ZOLOFT [Suspect]
     Indication: DEPRESSION
     Dosage: 25 MG, 1X/DAY
     Route: 048
     Dates: start: 20120413, end: 20120414

REACTIONS (5)
  - DYSKINESIA [None]
  - INAPPROPRIATE AFFECT [None]
  - TIC [None]
  - DYSPNOEA [None]
  - MUSCLE TWITCHING [None]
